FAERS Safety Report 9105355 (Version 1)
Quarter: 2013Q1

REPORT INFORMATION
  Report Type: Spontaneous
  Country: PL (occurrence: PL)
  Receive Date: 20130220
  Receipt Date: 20130220
  Transmission Date: 20140127
  Serious: Yes (Other)
  Sender: FDA-Public Use
  Company Number: PL-GLAXOSMITHKLINE-B0867886A

PATIENT
  Age: 2 Year
  Sex: Male

DRUGS (1)
  1. ZINNAT [Suspect]
     Indication: EAR INFECTION
     Route: 048
     Dates: start: 20130201

REACTIONS (6)
  - Convulsion [Unknown]
  - Diarrhoea [Unknown]
  - Oral fungal infection [Unknown]
  - Overdose [Unknown]
  - Drug administration error [Unknown]
  - Product quality issue [Unknown]
